FAERS Safety Report 5018016-3 (Version None)
Quarter: 2006Q2

REPORT INFORMATION
  Report Type: 
  Country: None (occurrence: None)
  Receive Date: 20060530
  Receipt Date: 20050503
  Transmission Date: 20061013
  Serious: Yes (Other)
  Sender: FDA-Public Use
  Company Number: 2005069578

PATIENT
  Age: 80 Year
  Sex: Female

DRUGS (6)
  1. LYRICA [Suspect]
     Indication: PAIN IN EXTREMITY
     Dosage: 225 MG (2 IN 1 D), ORAL
     Route: 048
     Dates: start: 20040929, end: 20050415
  2. FENTANYL [Concomitant]
  3. FUROSEMIDE [Concomitant]
  4. OMEPRAZOLE [Concomitant]
  5. TEMAZEPAM [Concomitant]
  6. MORPHINE SULFATE [Concomitant]

REACTIONS (4)
  - ABDOMINAL DISTENSION [None]
  - NASAL CONGESTION [None]
  - PANIC ATTACK [None]
  - SPEECH DISORDER [None]
